FAERS Safety Report 6731855-3 (Version None)
Quarter: 2010Q2

REPORT INFORMATION
  Report Type: 
  Country: None (occurrence: None)
  Receive Date: 20100519
  Receipt Date: 20100519
  Transmission Date: 20101027
  Serious: No
  Sender: FDA-Public Use
  Company Number: None

PATIENT
  Age: 11 Year
  Sex: Female
  Weight: 29.4838 kg

DRUGS (1)
  1. CHILDREN'S TYLENOL 80 MG PER  1/2 TSP TYLENOL [Suspect]
     Indication: PYREXIA
     Dosage: 2 1/2 TSP
     Dates: start: 20090102, end: 20100429

REACTIONS (13)
  - ABDOMINAL PAIN UPPER [None]
  - BACK PAIN [None]
  - DYSURIA [None]
  - FATIGUE [None]
  - FEELING ABNORMAL [None]
  - PAIN [None]
  - POOR QUALITY SLEEP [None]
  - PRODUCT CONTAMINATION PHYSICAL [None]
  - PRODUCT QUALITY ISSUE [None]
  - RASH [None]
  - RENAL PAIN [None]
  - SALT CRAVING [None]
  - SKIN DISCOLOURATION [None]
